FAERS Safety Report 20632053 (Version 1)
Quarter: 2022Q1

REPORT INFORMATION
  Report Type: Spontaneous
  Country: FI (occurrence: FI)
  Receive Date: 20220324
  Receipt Date: 20220324
  Transmission Date: 20220424
  Serious: Yes (Other)
  Sender: FDA-Public Use
  Company Number: FI-ABBVIE-22K-055-4329567-00

PATIENT
  Sex: Female

DRUGS (7)
  1. RINVOQ [Suspect]
     Active Substance: UPADACITINIB
     Indication: Rheumatoid arthritis
     Route: 048
     Dates: start: 20211213, end: 20220101
  2. PREDNISOLONE [Concomitant]
     Active Substance: PREDNISOLONE
     Indication: Product used for unknown indication
  3. LINAGLIPTIN [Concomitant]
     Active Substance: LINAGLIPTIN
     Indication: Type 2 diabetes mellitus
  4. CALCIUM CARBONATE\CHOLECALCIFEROL [Concomitant]
     Active Substance: CALCIUM CARBONATE\CHOLECALCIFEROL
     Indication: Product used for unknown indication
     Dosage: STRENGTH 500MG (AMOUNT OF VITAMIN D UNKNOWN)
  5. LOSATRIX COMP [Concomitant]
     Indication: Product used for unknown indication
     Dosage: STRENGTH 100MG (AMOUNT OF HYDROCHLOROTHIAZIDE UNKNOWN)
  6. IBUPROFEN [Concomitant]
     Active Substance: IBUPROFEN
     Indication: Product used for unknown indication
     Dosage: IF NECESSARY
  7. ZOLT [Concomitant]
     Indication: Product used for unknown indication

REACTIONS (11)
  - Lung disorder [Unknown]
  - Oropharyngeal discomfort [Unknown]
  - Heart rate increased [Unknown]
  - Dry mouth [Unknown]
  - Fatigue [Unknown]
  - Feeling cold [Unknown]
  - Obstructive airways disorder [Unknown]
  - Dyspnoea [Unknown]
  - Erythema [Unknown]
  - Oral discomfort [Unknown]
  - Blister [Unknown]

NARRATIVE: CASE EVENT DATE: 20210101
